FAERS Safety Report 19898430 (Version 1)
Quarter: 2021Q3

REPORT INFORMATION
  Report Type: Spontaneous
  Country: GB (occurrence: GB)
  Receive Date: 20210929
  Receipt Date: 20210929
  Transmission Date: 20211014
  Serious: Yes (Disabling, Other)
  Sender: FDA-Public Use
  Company Number: GB-MYLANLABS-2021M1066615

PATIENT
  Age: 55 Year
  Sex: Male
  Weight: 90 kg

DRUGS (6)
  1. ALFUZOSIN [Suspect]
     Active Substance: ALFUZOSIN
     Indication: ILL-DEFINED DISORDER
     Dosage: 2.5 MILLIGRAM
     Route: 048
     Dates: start: 202008
  2. LORATADINE. [Concomitant]
     Active Substance: LORATADINE
     Indication: ILL-DEFINED DISORDER
     Dosage: UNK
  3. LOSARTAN POTASSIUM. [Concomitant]
     Active Substance: LOSARTAN POTASSIUM
     Indication: ILL-DEFINED DISORDER
     Dosage: UNK
  4. TILDIEM LA [Concomitant]
     Active Substance: DILTIAZEM HYDROCHLORIDE
     Indication: ILL-DEFINED DISORDER
     Dosage: UNK
  5. SERTRALINE HYDROCHLORIDE. [Concomitant]
     Active Substance: SERTRALINE HYDROCHLORIDE
     Indication: ILL-DEFINED DISORDER
     Dosage: UNK
  6. BENDROFLUMETHIAZIDE [Concomitant]
     Active Substance: BENDROFLUMETHIAZIDE
     Indication: ILL-DEFINED DISORDER
     Dosage: UNK

REACTIONS (2)
  - Dupuytren^s contracture [Not Recovered/Not Resolved]
  - Periarthritis [Not Recovered/Not Resolved]

NARRATIVE: CASE EVENT DATE: 202103
